FAERS Safety Report 5401115-1 (Version None)
Quarter: 2007Q3

REPORT INFORMATION
  Report Type: 
  Country: None (occurrence: None)
  Receive Date: 20070731
  Receipt Date: 20070724
  Transmission Date: 20080115
  Serious: Yes (Hospitalization, Other)
  Sender: FDA-Public Use
  Company Number: PHNU2007DE02628

PATIENT
  Age: 73 Year
  Sex: Female

DRUGS (6)
  1. ZOMETA [Suspect]
     Indication: MULTIPLE MYELOMA
     Dosage: 4 MG, TIW
     Route: 042
     Dates: start: 20040201, end: 20060701
  2. AREDIA [Suspect]
     Indication: MULTIPLE MYELOMA
     Dosage: 60 MG, QMO
     Route: 042
     Dates: start: 20060701
  3. ALKERAN [Concomitant]
     Indication: CHEMOTHERAPY
     Dosage: 6 CYCLES
     Route: 065
     Dates: start: 20040201, end: 20041201
  4. VELCADE [Concomitant]
     Indication: CHEMOTHERAPY
     Dosage: 9 CYCLES
     Route: 065
     Dates: start: 20060901, end: 20070301
  5. EPOGEN [Concomitant]
     Indication: ANAEMIA
     Route: 065
  6. PREDNISOLONE [Concomitant]
     Dates: start: 20040201, end: 20041201

REACTIONS (9)
  - ANTIBIOTIC PROPHYLAXIS [None]
  - IMPAIRED HEALING [None]
  - ORAL SURGERY [None]
  - OSTEONECROSIS [None]
  - PERIODONTITIS [None]
  - SWELLING [None]
  - TOOTH EXTRACTION [None]
  - TOOTH LOSS [None]
  - X-RAY DENTAL [None]
